FAERS Safety Report 10548415 (Version 1)
Quarter: 2014Q4

REPORT INFORMATION
  Report Type: Spontaneous
  Country: US (occurrence: None)
  Receive Date: 20141027
  Receipt Date: 20141027
  Transmission Date: 20150529
  Serious: No
  Sender: FDA-Public Use
  Company Number: None

PATIENT
  Age: 60 Year
  Sex: Female
  Weight: 46.27 kg

DRUGS (1)
  1. LATANOPROST. [Suspect]
     Active Substance: LATANOPROST
     Indication: GLAUCOMA
     Dosage: 1 DROP EACH EYE @ BEDTIME    INTO THE EYE
     Dates: start: 20140913, end: 20140920

REACTIONS (5)
  - Pruritus [None]
  - Ulcer [None]
  - Urticaria [None]
  - Rash [None]
  - Throat tightness [None]

NARRATIVE: CASE EVENT DATE: 20140914
